FAERS Safety Report 4644693-2 (Version None)
Quarter: 2005Q3

REPORT INFORMATION
  Report Type: 
  Country: None (occurrence: None)
  Receive Date: 20050422
  Receipt Date: 20050406
  Transmission Date: 20060218
  Serious: Yes (Hospitalization)
  Sender: FDA-Public Use
  Company Number: 2005-00748

PATIENT
  Age: 60 Year
  Sex: Male
  Weight: 65 kg

DRUGS (1)
  1. VELCADE [Suspect]
     Dosage: 1.30 MG, 2/WEEK, INTRAVENOUS
     Route: 042
     Dates: start: 20050208

REACTIONS (1)
  - INTERSTITIAL LUNG DISEASE [None]
